FAERS Safety Report 6965985-8 (Version None)
Quarter: 2010Q3

REPORT INFORMATION
  Report Type: 
  Country: None (occurrence: None)
  Receive Date: 20100903
  Receipt Date: 20100831
  Transmission Date: 20110219
  Serious: Yes (Death)
  Sender: FDA-Public Use
  Company Number: GB-ABBOTT-10P-167-0667111-00

PATIENT
  Sex: Male
  Weight: 79 kg

DRUGS (1)
  1. HUMIRA [Suspect]
     Indication: RHEUMATOID ARTHRITIS
     Route: 058
     Dates: start: 20060127

REACTIONS (2)
  - CARDIAC HYPERTROPHY [None]
  - DRUG TOXICITY [None]
